FAERS Safety Report 6636302-8 (Version None)
Quarter: 2010Q1

REPORT INFORMATION
  Report Type: 
  Country: None (occurrence: None)
  Receive Date: 20100316
  Receipt Date: 20100310
  Transmission Date: 20100710
  Serious: Yes (Death)
  Sender: FDA-Public Use
  Company Number: US-GILEAD-2010-0027555

PATIENT
  Sex: Female
  Weight: 81.266 kg

DRUGS (7)
  1. LETAIRIS [Suspect]
     Indication: PULMONARY ARTERIAL HYPERTENSION
     Route: 048
     Dates: start: 20090325
  2. WARFARIN SODIUM [Concomitant]
  3. BUMETANIDE [Concomitant]
  4. POTASSIUM CHLORIDE [Concomitant]
  5. COMBIVENT [Concomitant]
  6. DUONEB [Concomitant]
  7. OXYGEN [Concomitant]

REACTIONS (1)
  - DEATH [None]
